FAERS Safety Report 9261180 (Version 3)
Quarter: 2013Q2

REPORT INFORMATION
  Report Type: Spontaneous
  Country: IN (occurrence: IN)
  Receive Date: 20130429
  Receipt Date: 20130516
  Transmission Date: 20140414
  Serious: Yes (Hospitalization, Other)
  Sender: FDA-Public Use
  Company Number: PHHY2013IN039869

PATIENT
  Age: 33 Year
  Sex: Female

DRUGS (17)
  1. SIMULECT [Suspect]
     Indication: RENAL TRANSPLANT
     Dosage: 20 MG, UNK
     Dates: start: 20130207
  2. SIMULECT [Suspect]
     Dosage: 20 MG, UNK
     Dates: start: 20130211
  3. SOLUMEDROL [Concomitant]
     Dosage: 1 DF, UNK
  4. SOLUMEDROL [Concomitant]
     Dosage: 1 DF, UNK
     Dates: start: 20130401
  5. SOLUMEDROL [Concomitant]
     Dosage: 1 DF, UNK
     Dates: start: 20130403
  6. DREZ [Concomitant]
  7. FRUSEMIDE [Concomitant]
  8. CELLCEPT [Concomitant]
     Dosage: 1 DF, UNK
  9. CELLCEPT [Concomitant]
     Dosage: 1 DF, UNK
     Dates: start: 20130403
  10. PREDNISOLONE [Concomitant]
     Dosage: 1 DF (1-0-0)
  11. RECORMON                                /SCH/ [Concomitant]
  12. POLYBION [Concomitant]
  13. SEROFLO [Concomitant]
  14. TACROLIMUS [Concomitant]
     Dosage: 2 DF (1-0-1)
  15. MYCOPHENOLATE MOFETIL [Concomitant]
     Dosage: 4 DF, (2-0-2)
  16. DILZEM [Concomitant]
     Dosage: 1 DF, (1-0-0)
  17. ALPRAX [Concomitant]
     Dosage: 1 DF, (0-0-1)

REACTIONS (7)
  - IgA nephropathy [Unknown]
  - Kidney transplant rejection [Unknown]
  - Complications of transplanted kidney [Unknown]
  - Blood pressure increased [Unknown]
  - Abdominal pain [Unknown]
  - Pyrexia [Unknown]
  - Haemoglobin decreased [Unknown]
